FAERS Safety Report 19079838 (Version 2)
Quarter: 2022Q3

REPORT INFORMATION
  Report Type: Report from Study
  Country: BR (occurrence: BR)
  Receive Date: 20210331
  Receipt Date: 20220715
  Transmission Date: 20221027
  Serious: Yes (Hospitalization, Other)
  Sender: FDA-Public Use
  Company Number: BR-TAKEDA-2021TUS019623

PATIENT
  Age: 45 Year
  Sex: Female

DRUGS (8)
  1. ICATIBANT [Suspect]
     Active Substance: ICATIBANT ACETATE
     Indication: Hereditary angioedema
     Dosage: UNK
     Route: 042
     Dates: start: 20111204
  2. ICATIBANT [Suspect]
     Active Substance: ICATIBANT ACETATE
     Indication: Hereditary angioedema
     Dosage: UNK
     Route: 042
     Dates: start: 20111204
  3. ICATIBANT [Suspect]
     Active Substance: ICATIBANT ACETATE
     Dosage: 30 MILLIGRAM
     Route: 042
     Dates: start: 20220226
  4. ICATIBANT [Suspect]
     Active Substance: ICATIBANT ACETATE
     Dosage: 30 MILLIGRAM
     Route: 042
     Dates: start: 20220226
  5. TRANEXAMIC ACID [Concomitant]
     Active Substance: TRANEXAMIC ACID
     Indication: Hereditary angioedema
     Dosage: 250 MILLIGRAM
     Route: 048
     Dates: start: 20160101, end: 20160801
  6. OXANDROLONE [Concomitant]
     Active Substance: OXANDROLONE
     Indication: Prophylaxis
     Dosage: 3 MILLIGRAM, BID
     Route: 048
     Dates: start: 20100708
  7. EPSILON AMINOCAPROIC ACID [Concomitant]
     Indication: Prophylaxis
     Dosage: 500 MILLIGRAM, BID
     Route: 048
     Dates: start: 20141106
  8. HUMAN PLASMA [Concomitant]
     Active Substance: HUMAN PLASMA
     Indication: Endoscopy
     Dosage: 3 DOSAGE FORM
     Route: 042
     Dates: end: 20200315

REACTIONS (1)
  - Angioedema [Recovered/Resolved]

NARRATIVE: CASE EVENT DATE: 20140308
